FAERS Safety Report 10608293 (Version 1)
Quarter: 2014Q4

REPORT INFORMATION
  Report Type: Report from Study
  Country: US (occurrence: US)
  Receive Date: 20141125
  Receipt Date: 20141125
  Transmission Date: 20150529
  Serious: Yes (Hospitalization)
  Sender: FDA-Public Use
  Company Number: US-SA-2014SA159784

PATIENT
  Sex: Female

DRUGS (6)
  1. LANTUS SOLOSTAR [Suspect]
     Active Substance: INSULIN GLARGINE
     Indication: TYPE 2 DIABETES MELLITUS
     Dosage: DOSE:80 UNIT(S)
     Route: 065
     Dates: end: 201407
  2. LANTUS SOLOSTAR [Suspect]
     Active Substance: INSULIN GLARGINE
     Indication: TYPE 2 DIABETES MELLITUS
     Dosage: DOSE:80 UNIT(S)
     Route: 065
     Dates: start: 2014, end: 201411
  3. GLIPIZIDE. [Concomitant]
     Active Substance: GLIPIZIDE
  4. NOVOLOG [Concomitant]
     Active Substance: INSULIN ASPART
  5. SOLOSTAR [Concomitant]
     Active Substance: DEVICE
  6. LEVEMIR [Concomitant]
     Active Substance: INSULIN DETEMIR
     Dates: start: 201407

REACTIONS (2)
  - Drug dose omission [Unknown]
  - Disability [Not Recovered/Not Resolved]
